FAERS Safety Report 5079079-2 (Version None)
Quarter: 2006Q3

REPORT INFORMATION
  Report Type: 
  Country: None (occurrence: None)
  Receive Date: 20060814
  Receipt Date: 20060810
  Transmission Date: 20061208
  Serious: Yes (Other)
  Sender: FDA-Public Use
  Company Number: US-KINGPHARMUSA00001-K200601029

PATIENT
  Age: 61 Year
  Sex: Female

DRUGS (2)
  1. ALTACE [Suspect]
     Indication: CARDIOVASCULAR DISORDER
     Dosage: UNK, QD
     Route: 048
     Dates: start: 20041001, end: 20041004
  2. ALTACE [Suspect]
     Dosage: 10 MG, QD
     Route: 048
     Dates: start: 20041005

REACTIONS (8)
  - DEAFNESS [None]
  - DEAFNESS UNILATERAL [None]
  - DIZZINESS [None]
  - NAUSEA [None]
  - TINNITUS [None]
  - VERTIGO [None]
  - VESTIBULAR DISORDER [None]
  - VOMITING [None]
